FAERS Safety Report 6241959-X (Version None)
Quarter: 2009Q2

REPORT INFORMATION
  Report Type: 
  Country: None (occurrence: None)
  Receive Date: 20090622
  Receipt Date: 20090611
  Transmission Date: 20091009
  Serious: Yes (Death)
  Sender: FDA-Public Use
  Company Number: OPER20090121

PATIENT
  Age: 24 Year
  Sex: Male

DRUGS (4)
  1. OPANA ER [Suspect]
     Indication: BACK PAIN
     Dosage: 20 MG, Q12H, 10 MG BID
     Dates: start: 20081229
  2. LORTAB [Suspect]
  3. VALIUM [Suspect]
  4. RESTORIL [Suspect]

REACTIONS (1)
  - DEATH [None]
